FAERS Safety Report 18745118 (Version 2)
Quarter: 2021Q1

REPORT INFORMATION
  Report Type: Report from Study
  Country: US (occurrence: US)
  Receive Date: 20210115
  Receipt Date: 20210120
  Transmission Date: 20210419
  Serious: Yes (Congenital Anomaly, Other)
  Sender: FDA-Public Use
  Company Number: US-VIIV HEALTHCARE LIMITED-US2021GSK008990

PATIENT
  Age: 3 Year
  Sex: Female
  Weight: 2.86 kg

DRUGS (1)
  1. DOLUTEGRAVIR [Suspect]
     Active Substance: DOLUTEGRAVIR
     Indication: HIV INFECTION
     Dosage: 50 MG, QD
     Route: 064
     Dates: start: 20170920

REACTIONS (3)
  - Macrocephaly [Unknown]
  - Encephalomalacia [Unknown]
  - Cerebral ventricle dilatation [Unknown]
